FAERS Safety Report 24549767 (Version 1)
Quarter: 2024Q4

REPORT INFORMATION
  Report Type: Spontaneous
  Country: US (occurrence: None)
  Receive Date: 20241024
  Receipt Date: 20241024
  Transmission Date: 20250114
  Serious: Yes (Life-Threatening, Hospitalization, Disabling)
  Sender: Public
  Company Number: None

PATIENT
  Age: 48 Year
  Sex: Female
  Weight: 79.7 kg

DRUGS (2)
  1. OZEMPIC [Suspect]
     Active Substance: SEMAGLUTIDE
     Indication: Weight decreased
     Dates: end: 20240921
  2. OZEMPIC [Concomitant]
     Active Substance: SEMAGLUTIDE

REACTIONS (6)
  - Vomiting [None]
  - Retching [None]
  - Cerebrovascular accident [None]
  - Vertebral artery aneurysm [None]
  - Subarachnoid haemorrhage [None]
  - Ruptured cerebral aneurysm [None]

NARRATIVE: CASE EVENT DATE: 20240923
